FAERS Safety Report 15090648 (Version 3)
Quarter: 2022Q1

REPORT INFORMATION
  Report Type: Report from Study
  Country: AU (occurrence: AU)
  Receive Date: 20180629
  Receipt Date: 20220331
  Transmission Date: 20220423
  Serious: Yes (Hospitalization)
  Sender: FDA-Public Use
  Company Number: AU-PFIZER INC-2018251315

PATIENT
  Age: 3 Year
  Sex: Male
  Weight: 19.4 kg

DRUGS (13)
  1. TEMSIROLIMUS [Suspect]
     Active Substance: TEMSIROLIMUS
     Indication: Chemotherapy
     Dosage: 11MG, 1 DOSE/WEEK (15 MG/M2, OVER 30-60 MINUTES ON DAYS 1, 8, AND 15)
     Route: 042
     Dates: start: 20180531
  2. VINCRISTINE SULFATE [Suspect]
     Active Substance: VINCRISTINE SULFATE
     Indication: Chemotherapy
     Dosage: 2.2MG, 1 DOSE/WEEK (1.5 MG/M2, OVER 1 MINUTE OR INFUSION VIA MINIBAG ON DAYS 1, 8, AND 15)
     Route: 042
     Dates: start: 20180524
  3. CAMPTOSAR [Suspect]
     Active Substance: IRINOTECAN HYDROCHLORIDE
     Dosage: 50 MG/M2, OVER 90 MINUTES ON DAYS 1-5 OF CYCLES 2 AND 4
     Route: 042
  4. DACTINOMYCIN [Suspect]
     Active Substance: DACTINOMYCIN
     Indication: Chemotherapy
     Dosage: 1MG, 1 DOSE/3 WEEKS (0.05 MG/KG, OVER 1-5 MINUTES ON DAY 1 OF CYCLES 1 AND 3)
     Route: 042
     Dates: start: 20180524
  5. CYCLOPHOSPHAMIDE [Suspect]
     Active Substance: CYCLOPHOSPHAMIDE
     Indication: Chemotherapy
     Dosage: 920MG, 1 DOSE/3 WEEKS (1200 MG/M2, OVER 60 MINUTES ON DAY 1 OF CYCLES 1 AND 3)
     Route: 042
     Dates: start: 20180524
  6. MESNA [Concomitant]
     Active Substance: MESNA
     Indication: Prophylaxis
     Dosage: 540 MG, 3 DOSES IN ONE DAY
     Route: 042
     Dates: start: 20180524, end: 20180524
  7. BACTRIM [Concomitant]
     Active Substance: SULFAMETHOXAZOLE\TRIMETHOPRIM
     Indication: Antifungal prophylaxis
     Dosage: UNK
     Route: 048
     Dates: start: 20180525, end: 20180525
  8. ONDANSETRON [Concomitant]
     Active Substance: ONDANSETRON
     Indication: Nausea
     Dosage: UNK
     Route: 042
     Dates: start: 20180524, end: 20180527
  9. CEFEPIME [Concomitant]
     Active Substance: CEFEPIME HYDROCHLORIDE
     Indication: Anti-infective therapy
     Dosage: UNK
     Route: 042
     Dates: start: 20180525, end: 20180527
  10. FUROSEMIDE [Concomitant]
     Active Substance: FUROSEMIDE
     Indication: Supportive care
     Dosage: UNK
     Route: 042
     Dates: start: 20180525, end: 20180525
  11. FENTANYL [Concomitant]
     Active Substance: FENTANYL
     Indication: Pain
     Dosage: UNK
     Route: 042
     Dates: start: 20180523, end: 20180523
  12. ACETAMINOPHEN [Concomitant]
     Active Substance: ACETAMINOPHEN
     Indication: Pain
     Dosage: UNK
     Route: 048
     Dates: start: 20180523, end: 20180523
  13. OXYCODONE [Concomitant]
     Active Substance: OXYCODONE
     Indication: Pain
     Dosage: UNK
     Route: 048
     Dates: start: 20180523, end: 20180523

REACTIONS (4)
  - Febrile neutropenia [Recovered/Resolved]
  - Neutrophil count decreased [Recovered/Resolved]
  - Neutrophil count decreased [Recovering/Resolving]
  - White blood cell count decreased [Recovered/Resolved]

NARRATIVE: CASE EVENT DATE: 20180531
